FAERS Safety Report 9765138 (Version 1)
Quarter: 2013Q4

REPORT INFORMATION
  Report Type: Spontaneous
  Country: US (occurrence: US)
  Receive Date: 20131217
  Receipt Date: 20131217
  Transmission Date: 20140711
  Serious: No
  Sender: FDA-Public Use
  Company Number: US-GLAXOSMITHKLINE-A0999194A

PATIENT
  Sex: Female

DRUGS (18)
  1. VOTRIENT [Suspect]
     Indication: CERVIX CARCINOMA
     Dosage: 400MG PER DAY
     Route: 048
     Dates: start: 20120501
  2. TAXOL [Concomitant]
     Route: 042
  3. DECADRON [Concomitant]
  4. ZOFRAN [Concomitant]
  5. ZYRTEC [Concomitant]
  6. VITAMIN E [Concomitant]
  7. POTASSIUM [Concomitant]
  8. GLUTAMINE [Concomitant]
  9. HCTZ [Concomitant]
  10. SIMVASTATIN [Concomitant]
  11. CELEBREX [Concomitant]
  12. OMEPRAZOLE [Concomitant]
  13. DIOVAN [Concomitant]
  14. LUNESTA [Concomitant]
  15. ASPIRIN [Concomitant]
  16. LORAZEPAM [Concomitant]
  17. IMODIUM [Concomitant]
  18. METHOTREXATE [Concomitant]

REACTIONS (2)
  - Diarrhoea [Unknown]
  - Fatigue [Unknown]
